FAERS Safety Report 12680014 (Version 1)
Quarter: 2016Q3

REPORT INFORMATION
  Report Type: Spontaneous
  Country: US (occurrence: None)
  Receive Date: 20160823
  Receipt Date: 20160823
  Transmission Date: 20161109
  Serious: Yes (Death, Hospitalization)
  Sender: FDA-Public Use
  Company Number: None

PATIENT
  Age: 62 Year
  Sex: Male

DRUGS (10)
  1. ATROPINE-DIPHENOXYLATE [Concomitant]
  2. IMIPENEM AND CILASTATIN [Concomitant]
     Active Substance: CILASTATIN SODIUM\IMIPENEM
  3. TACROLIMUS. [Concomitant]
     Active Substance: TACROLIMUS
  4. FENTANYL. [Concomitant]
     Active Substance: FENTANYL
  5. ISAVUCONAZONIUM [Suspect]
     Active Substance: ISAVUCONAZONIUM
     Indication: INFECTION
     Route: 042
     Dates: start: 20160710, end: 20160710
  6. CASPOFUNGIN [Concomitant]
     Active Substance: CASPOFUNGIN
  7. CEFOXITIN [Concomitant]
     Active Substance: CEFOXITIN SODIUM
  8. HEPARIN [Concomitant]
     Active Substance: HEPARIN SODIUM
  9. CALCIUM CHLORIDE. [Concomitant]
     Active Substance: CALCIUM CHLORIDE
  10. MAGNESIUM SULFATE. [Concomitant]
     Active Substance: MAGNESIUM SULFATE

REACTIONS (2)
  - Apnoea [None]
  - Unresponsive to stimuli [None]

NARRATIVE: CASE EVENT DATE: 20160710
